FAERS Safety Report 10277107 (Version 2)
Quarter: 2015Q1

REPORT INFORMATION
  Report Type: Spontaneous
  Country: US (occurrence: US)
  Receive Date: 20140703
  Receipt Date: 20150122
  Transmission Date: 20150720
  Serious: Yes (Hospitalization, Other)
  Sender: FDA-Public Use
  Company Number: US-009507513-1406USA012781

PATIENT
  Sex: Female
  Weight: 98.87 kg

DRUGS (5)
  1. HYDROCHLOROTHIAZIDE. [Concomitant]
     Active Substance: HYDROCHLOROTHIAZIDE
  2. LORTAB [Concomitant]
     Active Substance: ACETAMINOPHEN\HYDROCODONE BITARTRATE
  3. NEXIUM [Concomitant]
     Active Substance: ESOMEPRAZOLE MAGNESIUM
  4. ASPIRIN. [Concomitant]
     Active Substance: ASPIRIN
  5. NUVARING [Suspect]
     Active Substance: ETHINYL ESTRADIOL\ETONOGESTREL
     Route: 067

REACTIONS (14)
  - Leukocytosis [Unknown]
  - Back injury [Unknown]
  - Gastrooesophageal reflux disease [Unknown]
  - Thrombocytosis [Unknown]
  - Hypokalaemia [Unknown]
  - Scar excision [Unknown]
  - Deep vein thrombosis [Unknown]
  - Back pain [Unknown]
  - Ventricular hypertrophy [Unknown]
  - Immobile [Unknown]
  - Obesity [Unknown]
  - Hypertension [Unknown]
  - Vena cava filter insertion [Unknown]
  - Pulmonary embolism [Unknown]

NARRATIVE: CASE EVENT DATE: 201308
